FAERS Safety Report 11784468 (Version 1)
Quarter: 2015Q4

REPORT INFORMATION
  Report Type: Spontaneous
  Country: TH (occurrence: TH)
  Receive Date: 20151129
  Receipt Date: 20151129
  Transmission Date: 20160305
  Serious: Yes (Death)
  Sender: FDA-Public Use
  Company Number: TH-ROCHE-1668406

PATIENT
  Age: 79 Year
  Sex: Male
  Weight: 70 kg

DRUGS (1)
  1. ACTILYSE [Suspect]
     Active Substance: ALTEPLASE
     Indication: ISCHAEMIC STROKE
     Route: 042
     Dates: start: 20151122

REACTIONS (2)
  - Gingival bleeding [Fatal]
  - Pulse absent [Fatal]

NARRATIVE: CASE EVENT DATE: 20151122
